FAERS Safety Report 11717867 (Version 1)
Quarter: 2015Q4

REPORT INFORMATION
  Report Type: Spontaneous
  Country: US (occurrence: None)
  Receive Date: 20151109
  Receipt Date: 20151109
  Transmission Date: 20160304
  Serious: Yes (Hospitalization)
  Sender: FDA-Public Use
  Company Number: None

PATIENT
  Age: 45 Year
  Sex: Male

DRUGS (4)
  1. HYDROXYCUT [Suspect]
     Active Substance: HERBALS
     Indication: WEIGHT DECREASED
     Dates: start: 201404, end: 201405
  2. BYSTOLIC [Concomitant]
     Active Substance: NEBIVOLOL HYDROCHLORIDE
  3. AUGMENTIN [Suspect]
     Active Substance: AMOXICILLIN\CLAVULANATE POTASSIUM
     Indication: BRONCHITIS
     Dates: start: 20140530, end: 20140616
  4. PREDNISONE. [Concomitant]
     Active Substance: PREDNISONE

REACTIONS (4)
  - Drug-induced liver injury [None]
  - Hepatic fibrosis [None]
  - Steatohepatitis [None]
  - Hepatic steatosis [None]

NARRATIVE: CASE EVENT DATE: 20140710
